FAERS Safety Report 20082197 (Version 2)
Quarter: 2021Q4

REPORT INFORMATION
  Report Type: Spontaneous
  Country: NO (occurrence: NO)
  Receive Date: 20211117
  Receipt Date: 20211129
  Transmission Date: 20220303
  Serious: Yes (Hospitalization, Other)
  Sender: FDA-Public Use
  Company Number: NO-PFIZER INC-202101400002

PATIENT
  Age: 67 Year
  Sex: Female

DRUGS (10)
  1. BRIGATINIB [Suspect]
     Active Substance: BRIGATINIB
     Indication: Product used for unknown indication
     Dosage: 90 MILLIGRAM
     Route: 065
     Dates: start: 20190213
  2. BRIGATINIB [Suspect]
     Active Substance: BRIGATINIB
     Dosage: 180 MILLIGRAM
     Route: 065
  3. XALKORI [Suspect]
     Active Substance: CRIZOTINIB
     Indication: Lung adenocarcinoma
     Dosage: 500 MILLIGRAM, QD
     Route: 065
     Dates: start: 201704, end: 2017
  4. XALKORI [Suspect]
     Active Substance: CRIZOTINIB
     Dosage: 500 MILLIGRAM, QD
     Route: 065
     Dates: start: 201709, end: 2018
  5. XALKORI [Suspect]
     Active Substance: CRIZOTINIB
     Dosage: 400 MILLIGRAM, QD
     Route: 065
     Dates: start: 2018, end: 201807
  6. XALKORI [Suspect]
     Active Substance: CRIZOTINIB
     Dosage: 400 MILLIGRAM, QD
     Route: 065
     Dates: start: 201707, end: 201709
  7. ZYKADIA [Suspect]
     Active Substance: CERITINIB
     Indication: Lung adenocarcinoma
     Dosage: UNK
     Route: 065
     Dates: start: 2018, end: 2018
  8. ZYKADIA [Suspect]
     Active Substance: CERITINIB
     Dosage: UNK
     Route: 065
     Dates: start: 201807
  9. ZYKADIA [Suspect]
     Active Substance: CERITINIB
     Dosage: UNK
     Route: 065
     Dates: start: 2018, end: 201811
  10. MEDROL [Concomitant]
     Active Substance: METHYLPREDNISOLONE
     Dosage: UNK
     Route: 065

REACTIONS (9)
  - Malaise [Recovered/Resolved]
  - Nausea [Unknown]
  - Unresponsive to stimuli [Recovered/Resolved]
  - Transaminases increased [Unknown]
  - Neoplasm progression [Not Recovered/Not Resolved]
  - Diarrhoea [Unknown]
  - Neutrophil count decreased [Recovered/Resolved]
  - Dizziness [Not Recovered/Not Resolved]
  - Balance disorder [Not Recovered/Not Resolved]

NARRATIVE: CASE EVENT DATE: 20170101
